FAERS Safety Report 4888220-3 (Version None)
Quarter: 2006Q1

REPORT INFORMATION
  Report Type: 
  Country: None (occurrence: None)
  Receive Date: 20060123
  Receipt Date: 20060116
  Transmission Date: 20060701
  Serious: Yes (Hospitalization, Other)
  Sender: FDA-Public Use
  Company Number: FR-BRISTOL-MYERS SQUIBB COMPANY-13249701

PATIENT
  Age: 77 Year
  Sex: Female
  Weight: 72 kg

DRUGS (6)
  1. ELISOR TABS 20 MG [Suspect]
     Route: 048
  2. METFORMIN [Suspect]
  3. GLICLAZIDE [Suspect]
  4. KARDEGIC [Suspect]
  5. DIAFUSOR [Suspect]
  6. SOPROL [Suspect]

REACTIONS (4)
  - ANAEMIA [None]
  - CARDIAC FAILURE [None]
  - MELAENA [None]
  - ULCER [None]
